FAERS Safety Report 8086168-7 (Version None)
Quarter: 2012Q1

REPORT INFORMATION
  Report Type: 
  Country: None (occurrence: None)
  Receive Date: 20120128
  Receipt Date: 20110426
  Transmission Date: 20120608
  Serious: No
  Sender: FDA-Public Use
  Company Number: US-ABBOTT-11P-163-0721742-00

PATIENT
  Sex: Female
  Weight: 59.02 kg

DRUGS (3)
  1. CYMBALTA [Concomitant]
     Indication: DEPRESSION
  2. HUMIRA [Suspect]
     Indication: CROHN'S DISEASE
     Dates: start: 20080101
  3. VITAMIN D [Concomitant]
     Indication: VITAMIN SUPPLEMENTATION

REACTIONS (1)
  - URINARY TRACT INFECTION [None]
